FAERS Safety Report 13701342 (Version 2)
Quarter: 2017Q3

REPORT INFORMATION
  Report Type: Spontaneous
  Country: US (occurrence: US)
  Receive Date: 20170629
  Receipt Date: 20170921
  Transmission Date: 20171127
  Serious: No
  Sender: FDA-Public Use
  Company Number: US-ALLERGAN-1722246US

PATIENT
  Sex: Female

DRUGS (2)
  1. VIBERZI [Suspect]
     Active Substance: ELUXADOLINE
     Indication: IRRITABLE BOWEL SYNDROME
     Dosage: UNK
  2. VIBERZI [Suspect]
     Active Substance: ELUXADOLINE
     Dosage: 75 MG, BID
     Route: 065
     Dates: start: 201705

REACTIONS (1)
  - Drug ineffective [Unknown]
